FAERS Safety Report 12274058 (Version 1)
Quarter: 2016Q2

REPORT INFORMATION
  Report Type: Spontaneous
  Country: US (occurrence: US)
  Receive Date: 20160415
  Receipt Date: 20160415
  Transmission Date: 20160815
  Serious: No
  Sender: FDA-Public Use
  Company Number: US-ALLERGAN-1517852US

PATIENT
  Sex: Male

DRUGS (1)
  1. LUMIGAN [Suspect]
     Active Substance: BIMATOPROST
     Indication: PRODUCT USED FOR UNKNOWN INDICATION
     Dosage: UNK
     Route: 047

REACTIONS (5)
  - Madarosis [Not Recovered/Not Resolved]
  - Drug ineffective [Unknown]
  - Wrong technique in product usage process [Unknown]
  - Ocular hyperaemia [Not Recovered/Not Resolved]
  - Eye infection [Unknown]
